FAERS Safety Report 25908133 (Version 1)
Quarter: 2025Q4

REPORT INFORMATION
  Report Type: Spontaneous
  Country: US (occurrence: US)
  Receive Date: 20251010
  Receipt Date: 20251010
  Transmission Date: 20260117
  Serious: No
  Sender: SPROUT PHARMACEUTICALS
  Company Number: US-SPROUT PHARMACEUTICALS, INC.-2025SP000101

PATIENT

DRUGS (1)
  1. ADDYI [Suspect]
     Active Substance: FLIBANSERIN
     Indication: Product used for unknown indication
     Dosage: 100 MILLIGRAM, QD
     Route: 048

REACTIONS (7)
  - Brain fog [Unknown]
  - Migraine [Unknown]
  - Asthenia [Unknown]
  - Syncope [Unknown]
  - Dizziness [Unknown]
  - Hypotension [Unknown]
  - Fatigue [Unknown]
